FAERS Safety Report 6511468-9 (Version None)
Quarter: 2009Q4

REPORT INFORMATION
  Report Type: 
  Country: None (occurrence: None)
  Receive Date: 20091222
  Receipt Date: 20091214
  Transmission Date: 20100525
  Serious: Yes (Life-Threatening, Hospitalization)
  Sender: FDA-Public Use
  Company Number: FR-JNJCH-2009032426

PATIENT
  Sex: Male

DRUGS (5)
  1. ACTIFED [Suspect]
     Indication: RHINITIS
     Dosage: TEXT:2-3 TABLETS DAILY
     Route: 048
     Dates: start: 20091027, end: 20091029
  2. ACTIFED JOUR ET NUIT (NIGHT) [Suspect]
     Indication: RHINITIS
     Dosage: TEXT:1 TABLET NIGHTLY
     Route: 048
     Dates: start: 20091027, end: 20091029
  3. DESLORATADINE [Concomitant]
     Indication: SLEEP APNOEA SYNDROME
     Dosage: TEXT:1 TABLET DAILY
     Route: 048
     Dates: start: 20080101, end: 20091029
  4. NASONEX [Concomitant]
     Indication: SLEEP APNOEA SYNDROME
     Dosage: TEXT:2 PUFFS/DAY INTO EACH NOSTRIL, MORNING
     Route: 045
     Dates: start: 20080101, end: 20091029
  5. FERVEX [Concomitant]
     Indication: NASOPHARYNGITIS
     Dosage: TEXT:3 SACHET/DAY
     Route: 065
     Dates: start: 20091027, end: 20091029

REACTIONS (1)
  - TRANSIENT ISCHAEMIC ATTACK [None]
